FAERS Safety Report 22223683 (Version 1)
Quarter: 2023Q2

REPORT INFORMATION
  Report Type: Spontaneous
  Country: US (occurrence: None)
  Receive Date: 20230417
  Receipt Date: 20230417
  Transmission Date: 20230722
  Serious: No
  Sender: FDA-Public Use
  Company Number: None

PATIENT
  Age: 75 Year
  Sex: 0

DRUGS (1)
  1. GERI-TUSSIN [Suspect]
     Active Substance: GUAIFENESIN
     Indication: Pulmonary congestion
     Dosage: OTHER QUANTITY : 1 TEASPOON(S);?
     Route: 048
     Dates: start: 20230410, end: 20230410

REACTIONS (4)
  - Product quality issue [None]
  - Product taste abnormal [None]
  - Throat irritation [None]
  - Toxicity to various agents [None]

NARRATIVE: CASE EVENT DATE: 20230410
